FAERS Safety Report 8180112-X (Version None)
Quarter: 2012Q1

REPORT INFORMATION
  Report Type: 
  Country: None (occurrence: None)
  Receive Date: 20120302
  Receipt Date: 20120302
  Transmission Date: 20120608
  Serious: Yes (Other)
  Sender: FDA-Public Use
  Company Number: None

PATIENT
  Age: 60 Year
  Sex: Male
  Weight: 71.667 kg

DRUGS (1)
  1. ULORIC [Suspect]
     Indication: GOUT
     Dosage: 1 TABLET
     Route: 048
     Dates: start: 20120229, end: 20120229

REACTIONS (3)
  - CONTUSION [None]
  - OROPHARYNGEAL PAIN [None]
  - SCAB [None]
